FAERS Safety Report 6028568-2 (Version None)
Quarter: 2008Q4

REPORT INFORMATION
  Report Type: 
  Country: None (occurrence: None)
  Receive Date: 20081231
  Receipt Date: 20081231
  Transmission Date: 20090506
  Serious: Yes (Hospitalization)
  Sender: FDA-Public Use
  Company Number: None

PATIENT
  Age: 85 Year
  Sex: Male
  Weight: 79.6 kg

DRUGS (2)
  1. ASPIRIN [Suspect]
     Indication: BACK PAIN
     Dosage: 81 MG ONCE PO
     Route: 048
     Dates: start: 20080211, end: 20081010
  2. SULINDAC [Suspect]
     Indication: BACK PAIN
     Dosage: 200 MG PRN PO
     Route: 048
     Dates: start: 20050708, end: 20081010

REACTIONS (5)
  - GASTRIC DISORDER [None]
  - GASTRIC HAEMORRHAGE [None]
  - HAEMANGIOMA [None]
  - HAEMATEMESIS [None]
  - VOCAL CORD DISORDER [None]
